FAERS Safety Report 11534611 (Version 1)
Quarter: 2015Q3

REPORT INFORMATION
  Report Type: Spontaneous
  Country: US (occurrence: None)
  Receive Date: 20150921
  Receipt Date: 20150921
  Transmission Date: 20151125
  Serious: No
  Sender: FDA-Public Use
  Company Number: None

PATIENT
  Age: 53 Year
  Sex: Male

DRUGS (1)
  1. HUMIRA [Suspect]
     Active Substance: ADALIMUMAB
     Indication: ANKYLOSING SPONDYLITIS
     Dosage: FIRST SHIPPED ON 9/2/2015
     Route: 058
     Dates: start: 20150902

REACTIONS (2)
  - Nasal congestion [None]
  - Headache [None]

NARRATIVE: CASE EVENT DATE: 20150903
